FAERS Safety Report 22830093 (Version 2)
Quarter: 2023Q4

REPORT INFORMATION
  Report Type: Spontaneous
  Country: US (occurrence: US)
  Receive Date: 20230816
  Receipt Date: 20231114
  Transmission Date: 20240109
  Serious: No
  Sender: FDA-Public Use
  Company Number: US-SA-SAC20230811000269

PATIENT
  Sex: Male

DRUGS (1)
  1. DUPIXENT [Suspect]
     Active Substance: DUPILUMAB
     Indication: Dermatitis atopic
     Dosage: 300 MG, QOW
     Route: 058

REACTIONS (7)
  - Fatigue [Recovered/Resolved]
  - Rash pruritic [Unknown]
  - Rash erythematous [Unknown]
  - Feeling abnormal [Unknown]
  - Asthenia [Unknown]
  - Skin exfoliation [Unknown]
  - Arthralgia [Unknown]
